FAERS Safety Report 8552721 (Version 3)
Quarter: 2014Q1

REPORT INFORMATION
  Report Type: Spontaneous
  Country: US (occurrence: US)
  Receive Date: 20120508
  Receipt Date: 20140303
  Transmission Date: 20141002
  Serious: Yes (Other)
  Sender: FDA-Public Use
  Company Number: CHPA2012US009927

PATIENT
  Sex: Female

DRUGS (3)
  1. EXCEDRIN UNKNOWN [Suspect]
     Indication: HEADACHE
     Dosage: 2 DF, QD
     Route: 048
  2. EXCEDRIN UNKNOWN [Suspect]
     Indication: CANCER PAIN
  3. EXCEDRIN UNKNOWN [Suspect]
     Indication: OFF LABEL USE

REACTIONS (6)
  - Cervix carcinoma [Not Recovered/Not Resolved]
  - Asthma [Recovered/Resolved]
  - Stress [Recovering/Resolving]
  - Therapeutic response unexpected [Unknown]
  - Drug ineffective for unapproved indication [Unknown]
  - Feeling abnormal [Recovered/Resolved]
